FAERS Safety Report 23834932 (Version 1)
Quarter: 2024Q2

REPORT INFORMATION
  Report Type: Spontaneous
  Country: NL (occurrence: NL)
  Receive Date: 20240509
  Receipt Date: 20240509
  Transmission Date: 20240715
  Serious: Yes (Other)
  Sender: FDA-Public Use
  Company Number: NL-AMGEN-NLDSP2024087848

PATIENT

DRUGS (1)
  1. BEVACIZUMAB [Suspect]
     Active Substance: BEVACIZUMAB
     Indication: Acoustic neuroma
     Dosage: 7.5 MILLIGRAM/KILOGRAM, Q3WK
     Route: 042

REACTIONS (25)
  - Acoustic neuroma [Unknown]
  - Erectile dysfunction [Unknown]
  - Hyperkalaemia [Unknown]
  - Deafness [Unknown]
  - Thrombocytopenia [Unknown]
  - Hepatic enzyme increased [Unknown]
  - Menstruation irregular [Unknown]
  - Dermatitis allergic [Unknown]
  - Vertigo [Unknown]
  - Drug effective for unapproved indication [Unknown]
  - Oedema peripheral [Unknown]
  - Hypertension [Unknown]
  - Fatigue [Unknown]
  - Diarrhoea [Unknown]
  - Dry skin [Unknown]
  - Epistaxis [Unknown]
  - Headache [Unknown]
  - Impaired healing [Unknown]
  - Infection [Unknown]
  - Myalgia [Unknown]
  - Nausea [Unknown]
  - Dysphonia [Unknown]
  - Hyperglycaemia [Unknown]
  - Proteinuria [Unknown]
  - Off label use [Unknown]
